FAERS Safety Report 15853203 (Version 1)
Quarter: 2018Q4

REPORT INFORMATION
  Report Type: Spontaneous
  Country: US (occurrence: US)
  Receive Date: 20181228
  Receipt Date: 20181228
  Transmission Date: 20190205
  Serious: Yes (Hospitalization)
  Sender: FDA-Public Use
  Company Number: None

PATIENT
  Age: 56 Year
  Sex: Female

DRUGS (2)
  1. COPAXONE [Concomitant]
     Active Substance: GLATIRAMER ACETATE
  2. H.P. ACTHAR [Suspect]
     Active Substance: CORTICOTROPIN
     Route: 058
     Dates: start: 201811

REACTIONS (2)
  - Condition aggravated [None]
  - Spinal osteoarthritis [None]

NARRATIVE: CASE EVENT DATE: 20181221
